FAERS Safety Report 10625093 (Version 1)
Quarter: 2014Q4

REPORT INFORMATION
  Report Type: Spontaneous
  Country: GR (occurrence: None)
  Receive Date: 20141202
  Receipt Date: 20141202
  Transmission Date: 20150529
  Serious: Yes (Life-Threatening)
  Sender: FDA-Public Use
  Company Number: GR-DEXPHARM-20140912

PATIENT
  Age: 59 Year
  Sex: Male

DRUGS (8)
  1. INSULIN [Suspect]
     Active Substance: INSULIN NOS
  2. CLOPIDOGREL [Suspect]
     Active Substance: CLOPIDOGREL BISULFATE
  3. SPIRONOLACTONE. [Suspect]
     Active Substance: SPIRONOLACTONE
     Dosage: 1 IN 1 DAYS
  4. CARVEDILOL. [Suspect]
     Active Substance: CARVEDILOL
     Dosage: 2 IN 1 DAYS
  5. ASPIRIN. [Suspect]
     Active Substance: ASPIRIN
  6. DICLOFENAC [Suspect]
     Active Substance: DICLOFENAC
     Indication: BACK PAIN
  7. METFORMIN [Suspect]
     Active Substance: METFORMIN HYDROCHLORIDE
     Dosage: 2 IN 1 DAYS
  8. TELMISARTAN+HYDROCHLOROTHIAZIDE [Suspect]
     Active Substance: HYDROCHLOROTHIAZIDE\TELMISARTAN

REACTIONS (7)
  - Muscular weakness [None]
  - Acute kidney injury [None]
  - Hyperglycaemia [None]
  - Metabolic acidosis [None]
  - Back pain [None]
  - Drug interaction [None]
  - Hyperkalaemia [None]
